FAERS Safety Report 6742359-6 (Version None)
Quarter: 2010Q2

REPORT INFORMATION
  Report Type: 
  Country: None (occurrence: None)
  Receive Date: 20100526
  Receipt Date: 20100520
  Transmission Date: 20101027
  Serious: Yes (Death, Hospitalization)
  Sender: FDA-Public Use
  Company Number: US-BRISTOL-MYERS SQUIBB COMPANY-15115264

PATIENT
  Age: 51 Year
  Sex: Female

DRUGS (22)
  1. PACLITAXEL [Suspect]
     Indication: NON-SMALL CELL LUNG CANCER
     Route: 042
  2. CARBOPLATIN [Suspect]
     Indication: NON-SMALL CELL LUNG CANCER
     Route: 042
  3. RISEDRONATE SODIUM [Concomitant]
     Indication: OSTEOPOROSIS
     Dates: start: 20081107, end: 20100125
  4. SERETIDE [Concomitant]
     Indication: NON-SMALL CELL LUNG CANCER
     Dates: start: 20091028, end: 20100125
  5. SALBUTAMOL [Concomitant]
     Dates: start: 20091103, end: 20100125
  6. AUGMENTIN '125' [Concomitant]
     Indication: EAR INFECTION
     Dates: start: 20100111, end: 20100125
  7. CYCLOBENZAPRINE [Concomitant]
     Indication: BACK PAIN
     Dates: start: 20090203, end: 20100125
  8. DULOXETINE HYDROCHLORIDE [Concomitant]
     Indication: DEPRESSION
     Dates: start: 20091210, end: 20100125
  9. PROPACET 100 [Concomitant]
     Indication: CANCER PAIN
     Dates: start: 20100108, end: 20100125
  10. DIAZEPAM [Concomitant]
     Indication: ANXIETY
     Dates: start: 20091130, end: 20100125
  11. FAMOTIDINE [Concomitant]
     Indication: GASTROOESOPHAGEAL REFLUX DISEASE
     Dates: start: 20091111, end: 20100125
  12. FERROUS SULFATE TAB [Concomitant]
     Indication: ANAEMIA
     Dates: start: 20080902, end: 20100125
  13. FUROSEMIDE [Concomitant]
     Indication: OEDEMA
     Dates: start: 20090203, end: 20100125
  14. FLUVASTATIN [Concomitant]
     Indication: BLOOD CHOLESTEROL INCREASED
     Dates: start: 20080918, end: 20100125
  15. LEVOTHYROXINE SODIUM [Concomitant]
     Indication: HYPOTHYROIDISM
     Dates: start: 20100108, end: 20100125
  16. LISINOPRIL [Concomitant]
     Indication: HYPERTENSION
     Dates: start: 20100111, end: 20100125
  17. PREGABALIN [Concomitant]
     Indication: CONVULSION PROPHYLAXIS
     Dates: start: 20080126, end: 20100125
  18. MYLANTA [Concomitant]
     Indication: CONSTIPATION
     Dates: start: 20091028, end: 20100125
  19. LANSOPRAZOLE [Concomitant]
     Indication: GASTROOESOPHAGEAL REFLUX DISEASE
     Dates: start: 20090713, end: 20100125
  20. QUETIAPINE FUMARATE [Concomitant]
     Indication: DEPRESSION
     Dates: start: 20080902, end: 20100125
  21. VICODIN [Concomitant]
     Indication: CANCER PAIN
     Dates: start: 20091031, end: 20100125
  22. SALBUTAMOL [Concomitant]
     Indication: NON-SMALL CELL LUNG CANCER
     Dates: start: 20100108, end: 20100125

REACTIONS (3)
  - MULTI-ORGAN FAILURE [None]
  - NEUTROPENIA [None]
  - SEPTIC SHOCK [None]
